FAERS Safety Report 4945109-9 (Version None)
Quarter: 2006Q1

REPORT INFORMATION
  Report Type: 
  Country: None (occurrence: None)
  Receive Date: 20060314
  Receipt Date: 20060314
  Transmission Date: 20060701
  Serious: Yes (Death, Life-Threatening, Hospitalization)
  Sender: FDA-Public Use
  Company Number: None

PATIENT
  Age: 56 Year
  Sex: Male
  Weight: 63 kg

DRUGS (6)
  1. CYTOXAN [Suspect]
     Indication: ALLOGENIC BONE MARROW TRANSPLANTATION THERAPY
     Dosage: 4600 MG/IV
     Route: 042
     Dates: start: 20051126, end: 20051127
  2. CYTOXAN [Suspect]
     Indication: CHEMOTHERAPY
     Dosage: 4600 MG/IV
     Route: 042
     Dates: start: 20051126, end: 20051127
  3. TBI [Suspect]
     Indication: ACUTE MYELOID LEUKAEMIA
     Dosage: 1200CGY
     Dates: start: 20051128, end: 20051130
  4. CITROLOPRAM [Concomitant]
  5. LASIX [Concomitant]
  6. MORPHINE [Concomitant]

REACTIONS (8)
  - ANOREXIA [None]
  - BACTERAEMIA [None]
  - COMPLICATIONS OF TRANSPLANT SURGERY [None]
  - GENERAL PHYSICAL HEALTH DETERIORATION [None]
  - HYPOXIA [None]
  - PNEUMONIA [None]
  - RESPIRATORY DISORDER [None]
  - STEM CELL TRANSPLANT [None]
